FAERS Safety Report 5650684-5 (Version None)
Quarter: 2008Q1

REPORT INFORMATION
  Report Type: 
  Country: None (occurrence: None)
  Receive Date: 20080305
  Receipt Date: 20080305
  Transmission Date: 20080703
  Serious: Yes (Life-Threatening)
  Sender: FDA-Public Use
  Company Number: None

PATIENT
  Sex: Female
  Weight: 47.6277 kg

DRUGS (1)
  1. HEPARIN [Suspect]
     Indication: SURGERY
     Dates: start: 20060523, end: 20060712

REACTIONS (1)
  - LEG AMPUTATION [None]
